FAERS Safety Report 14006175 (Version 2)
Quarter: 2017Q3

REPORT INFORMATION
  Report Type: Report from Study
  Country: None (occurrence: DK)
  Receive Date: 20170924
  Receipt Date: 20170929
  Transmission Date: 20171128
  Serious: Yes (Hospitalization)
  Sender: FDA-Public Use
  Company Number: DK-BIOGEN-2017BV000143

PATIENT
  Sex: Male
  Weight: 12 kg

DRUGS (7)
  1. PANTHENOL [Concomitant]
     Active Substance: PANTHENOL
     Indication: RASH
     Dosage: 1 APPLICATION AS NEEDED
     Route: 061
     Dates: start: 20170423
  2. TRANEXAMIC ACID. [Concomitant]
     Active Substance: TRANEXAMIC ACID
     Indication: HAEMORRHAGE
     Dosage: AS NEEDED
     Route: 048
     Dates: start: 20160928
  3. AIROMIR [Concomitant]
     Active Substance: ALBUTEROL SULFATE
     Indication: ASTHMA
     Dosage: 1 INHALATION AS NEEDED
     Dates: start: 20170407
  4. PARACETAMOL [Concomitant]
     Active Substance: ACETAMINOPHEN
     Indication: PAIN
     Dosage: AS NEEDED
     Route: 048
     Dates: start: 20170426
  5. RFIXFC [Suspect]
     Active Substance: EFTRENONACOG ALFA
     Dosage: EVERY MONDAY
     Route: 042
     Dates: start: 20160601
  6. EMLA [Concomitant]
     Active Substance: LIDOCAINE\PRILOCAINE
     Indication: ANALGESIC THERAPY
     Dosage: 1 DRESSING; START DATE IS FUTURE DATE; NOT ENTERED
     Route: 062
  7. RFIXFC [Suspect]
     Active Substance: EFTRENONACOG ALFA
     Indication: FACTOR IX DEFICIENCY
     Route: 042
     Dates: start: 20161011

REACTIONS (1)
  - Head injury [Recovered/Resolved]

NARRATIVE: CASE EVENT DATE: 20170601
